FAERS Safety Report 6779090-7 (Version None)
Quarter: 2010Q2

REPORT INFORMATION
  Report Type: 
  Country: None (occurrence: None)
  Receive Date: 20100618
  Receipt Date: 20100607
  Transmission Date: 20101027
  Serious: Yes (Hospitalization)
  Sender: FDA-Public Use
  Company Number: JP-ELI_LILLY_AND_COMPANY-JP201005003855

PATIENT
  Sex: Male
  Weight: 41.4 kg

DRUGS (15)
  1. PEMETREXED [Suspect]
     Indication: NON-SMALL CELL LUNG CANCER
     Dosage: 694 MG, OTHER
     Route: 042
     Dates: start: 20100414, end: 20100507
  2. CARBOPLATIN [Concomitant]
     Indication: NON-SMALL CELL LUNG CANCER
     Dosage: 6 D/F, OTHER
     Route: 042
     Dates: start: 20100414, end: 20100507
  3. PANVITAN [Concomitant]
     Dosage: 1 G, DAILY (1/D)
     Route: 048
     Dates: start: 20100407
  4. VITAMIN B-12 [Concomitant]
     Dosage: 1 MG, OTHER
     Route: 030
     Dates: start: 20100407
  5. WARFARIN [Concomitant]
     Indication: ATRIAL FIBRILLATION
     Dosage: 2 MG, DAILY (1/D)
     Route: 048
     Dates: start: 20100413, end: 20100514
  6. DECADRON [Concomitant]
     Indication: PEMPHIGUS
     Dosage: 2 MG, 2/D
     Route: 048
     Dates: start: 20100428, end: 20100514
  7. TRIAZOLAM [Concomitant]
     Indication: INSOMNIA
     Dosage: 0.25 MG, DAILY (1/D)
     Route: 048
     Dates: start: 20080101
  8. SPIRIVA [Concomitant]
     Indication: EMPHYSEMA
     Dosage: 18 UG, DAILY (1/D)
     Route: 055
     Dates: start: 20100406, end: 20100514
  9. PRIMPERAN /00041901/ [Concomitant]
     Indication: PROPHYLAXIS OF NAUSEA AND VOMITING
     Dosage: 5 MG, 3/D
     Route: 048
     Dates: start: 20100412, end: 20100514
  10. PRIMPERAN /00041901/ [Concomitant]
     Dosage: 20 MG, UNK
     Route: 042
     Dates: start: 20100514, end: 20100514
  11. ROPION [Concomitant]
     Indication: PYREXIA
     Dosage: 100 MG, 2/D
     Route: 042
     Dates: start: 20100514, end: 20100514
  12. SERENACE [Concomitant]
     Indication: PROPHYLAXIS OF NAUSEA AND VOMITING
     Dosage: 2.5 MG, UNK
     Route: 042
     Dates: start: 20100514, end: 20100514
  13. ISOTONIC SOLUTIONS [Concomitant]
     Indication: DECREASED APPETITE
     Dosage: 500 ML, UNK
     Route: 042
     Dates: start: 20100514, end: 20100514
  14. GLUCOSE [Concomitant]
     Indication: DECREASED APPETITE
     Dosage: 20 ML, UNK
     Route: 042
     Dates: start: 20100514, end: 20100514
  15. VITAMEDIN [Concomitant]
     Indication: DECREASED APPETITE
     Dosage: 1 D/F, UNK
     Route: 042
     Dates: start: 20100514

REACTIONS (10)
  - BLOOD PRESSURE DECREASED [None]
  - BONE MARROW FAILURE [None]
  - DISSEMINATED INTRAVASCULAR COAGULATION [None]
  - GASTRIC ULCER [None]
  - GASTRIC ULCER HAEMORRHAGE [None]
  - HYPOPHAGIA [None]
  - INFECTION [None]
  - LOSS OF CONSCIOUSNESS [None]
  - NAUSEA [None]
  - STRESS [None]
